FAERS Safety Report 6872385-8 (Version None)
Quarter: 2010Q3

REPORT INFORMATION
  Report Type: 
  Country: None (occurrence: None)
  Receive Date: 20100723
  Receipt Date: 20080922
  Transmission Date: 20110219
  Serious: No
  Sender: FDA-Public Use
  Company Number: US-PFIZER INC-2008079867

PATIENT
  Sex: Female
  Weight: 68.04 kg

DRUGS (12)
  1. CHANTIX [Suspect]
     Indication: SMOKING CESSATION THERAPY
     Route: 048
     Dates: start: 20080811
  2. METFORMIN HYDROCHLORIDE [Concomitant]
  3. STARLIX [Concomitant]
  4. ZAROXOLYN [Concomitant]
  5. ALDACTONE [Concomitant]
  6. IMDUR [Concomitant]
  7. TOPROL-XL [Concomitant]
  8. PLAVIX [Concomitant]
  9. NORVASC [Concomitant]
  10. ZOLOFT [Concomitant]
  11. VYTORIN [Concomitant]
  12. ANASTROZOLE [Concomitant]

REACTIONS (2)
  - MALAISE [None]
  - NAUSEA [None]
